FAERS Safety Report 8301383-2 (Version None)
Quarter: 2012Q2

REPORT INFORMATION
  Report Type: 
  Country: None (occurrence: None)
  Receive Date: 20120417
  Receipt Date: 20120402
  Transmission Date: 20120825
  Serious: Yes (Hospitalization)
  Sender: FDA-Public Use
  Company Number: 1215813

PATIENT
  Age: 69 Year
  Sex: Male

DRUGS (10)
  1. CARBOPLATIN [Suspect]
     Indication: LUNG NEOPLASM MALIGNANT
     Dosage: INTRAVENOUS (NOT OTHERWISE SPECIFIED)
     Route: 042
     Dates: start: 20111205
  2. (FORLAX /00754501/) [Concomitant]
  3. (TIORFAN) [Concomitant]
  4. ATORVASTATIN [Concomitant]
  5. PACLITAXEL [Suspect]
     Indication: LUNG NEOPLASM MALIGNANT
     Dosage: INTRAVENOUS (NOT OTHERWISE SPECIFIED)
     Route: 042
     Dates: start: 20111205
  6. (LEXOMIL) [Concomitant]
  7. CORDARONE [Concomitant]
  8. NEXIUM [Concomitant]
  9. (FOLIC ACID) [Concomitant]
  10. (PARACETAMOL) [Concomitant]

REACTIONS (1)
  - PANCYTOPENIA [None]
